FAERS Safety Report 8808826 (Version 1)
Quarter: 2012Q4

REPORT INFORMATION
  Report Type: 
  Country: US (occurrence: None)
  Receive Date: 20120921
  Receipt Date: 20120921
  Transmission Date: 20130627
  Serious: Yes (Hospitalization)
  Sender: FDA-Public Use
  Company Number: None

PATIENT
  Sex: Female
  Weight: 77.28 kg

DRUGS (2)
  1. PACLITAXEL (TAXOL) [Suspect]
     Dates: start: 20120828
  2. TOPOTECAN [Suspect]
     Dates: start: 20120828

REACTIONS (4)
  - Dehydration [None]
  - Anaemia [None]
  - Neutropenia [None]
  - Failure to thrive [None]
